FAERS Safety Report 5995014-4 (Version None)
Quarter: 2008Q4

REPORT INFORMATION
  Report Type: 
  Country: None (occurrence: None)
  Receive Date: 20081212
  Receipt Date: 20080921
  Transmission Date: 20090506
  Serious: No
  Sender: FDA-Public Use
  Company Number: US-ABBOTT-08P-163-0477433-00

PATIENT
  Sex: Female
  Weight: 88.53 kg

DRUGS (8)
  1. HUMIRA [Suspect]
     Indication: RHEUMATOID ARTHRITIS
     Route: 058
     Dates: start: 20070101, end: 20080921
  2. HUMIRA [Suspect]
     Route: 058
     Dates: start: 20080922
  3. ISOSORBIDE DINITRATE [Concomitant]
     Indication: ARTERIOSPASM CORONARY
     Route: 048
     Dates: start: 20040101
  4. METOPROLOL SUCCINATE [Concomitant]
     Indication: ARRHYTHMIA
     Route: 048
     Dates: start: 20040101
  5. ENALAPRIL MALEATE [Concomitant]
     Indication: BLOOD PRESSURE
     Route: 048
     Dates: start: 20040101
  6. METFORMIN HCL [Concomitant]
     Indication: DIABETES MELLITUS
     Route: 048
     Dates: start: 20010101
  7. VIGRAN [Concomitant]
     Indication: VITAMIN SUPPLEMENTATION
     Route: 048
  8. METHOTREXATE [Concomitant]
     Indication: RHEUMATOID ARTHRITIS
     Dosage: 4 TAB FRI, 4 TAB SAT
     Route: 048

REACTIONS (5)
  - NASOPHARYNGITIS [None]
  - PRODUCTIVE COUGH [None]
  - PYREXIA [None]
  - SPUTUM DISCOLOURED [None]
  - UPPER RESPIRATORY TRACT INFECTION [None]
